FAERS Safety Report 6113318-1 (Version None)
Quarter: 2009Q1

REPORT INFORMATION
  Report Type: 
  Country: None (occurrence: None)
  Receive Date: 20090312
  Receipt Date: 20000817
  Transmission Date: 20090719
  Serious: No
  Sender: FDA-Public Use
  Company Number: US-ABBOTT-08P-163-0456606-00

PATIENT
  Age: 40 Year

DRUGS (2)
  1. DEPAKOTE [Suspect]
     Indication: DEPRESSION
  2. DEPAKOTE [Suspect]
     Indication: MANIA

REACTIONS (3)
  - ALCOHOLISM [None]
  - FIBROMYALGIA [None]
  - HEPATIC ENZYME INCREASED [None]
